FAERS Safety Report 9133824 (Version 1)
Quarter: 2013Q1

REPORT INFORMATION
  Report Type: Other
  Country: FI (occurrence: FI)
  Receive Date: 20130303
  Receipt Date: 20130303
  Transmission Date: 20140127
  Serious: No
  Sender: FDA-Public Use
  Company Number: FI-ENDO PHARMACEUTICALS INC.-VANT20110058

PATIENT
  Sex: Male

DRUGS (1)
  1. VANTAS [Suspect]
     Indication: PRODUCT USED FOR UNKNOWN INDICATION
     Dosage: 0.137 MG
     Route: 058
     Dates: start: 20110222

REACTIONS (2)
  - Prostatic specific antigen increased [Unknown]
  - Drug ineffective [Unknown]
